FAERS Safety Report 5595801-0 (Version None)
Quarter: 2008Q1

REPORT INFORMATION
  Report Type: 
  Country: None (occurrence: None)
  Receive Date: 20080118
  Receipt Date: 20080117
  Transmission Date: 20080703
  Serious: Yes (Hospitalization)
  Sender: FDA-Public Use
  Company Number: D0055835A

PATIENT
  Sex: Male

DRUGS (3)
  1. SULTANOL [Suspect]
     Route: 055
  2. AERODUR [Concomitant]
     Route: 055
  3. SYMBICORT [Concomitant]
     Route: 055

REACTIONS (1)
  - DEAFNESS UNILATERAL [None]
